FAERS Safety Report 6476828-3 (Version None)
Quarter: 2009Q4

REPORT INFORMATION
  Report Type: 
  Country: None (occurrence: None)
  Receive Date: 20091119
  Receipt Date: 20090828
  Transmission Date: 20100525
  Serious: Yes (Hospitalization)
  Sender: FDA-Public Use
  Company Number: 2009SP019768

PATIENT
  Age: 41 Year
  Sex: Female

DRUGS (8)
  1. IMPLANON [Suspect]
     Indication: CONTRACEPTION
     Dates: start: 20080410
  2. CERAZETTE (DESOGESTREL) [Suspect]
     Indication: CONTRACEPTION
     Dates: start: 20070724, end: 20080416
  3. CITALOPRAM HYDROBROMIDE [Concomitant]
  4. ASPIRIN [Concomitant]
  5. INEGY [Concomitant]
  6. PANTOPRAZOL [Concomitant]
  7. LYRICA [Concomitant]
  8. SOLVEX /00150901/ [Concomitant]

REACTIONS (2)
  - CAROTID ARTERY THROMBOSIS [None]
  - CEREBROVASCULAR ACCIDENT [None]
